FAERS Safety Report 8268862-8 (Version None)
Quarter: 2012Q2

REPORT INFORMATION
  Report Type: 
  Country: None (occurrence: None)
  Receive Date: 20120409
  Receipt Date: 20120409
  Transmission Date: 20120825
  Serious: Yes (Other)
  Sender: FDA-Public Use
  Company Number: None

PATIENT
  Age: 48 Year
  Sex: Female
  Weight: 65.77 kg

DRUGS (1)
  1. RECLAST [Suspect]
     Indication: OSTEOPOROSIS
     Dates: start: 20101008, end: 20101008

REACTIONS (6)
  - PAIN IN JAW [None]
  - ORAL PAIN [None]
  - TOOTH FRACTURE [None]
  - ORAL INFECTION [None]
  - BONE LOSS [None]
  - BONE DISORDER [None]
